FAERS Safety Report 20369309 (Version 1)
Quarter: 2022Q1

REPORT INFORMATION
  Report Type: Spontaneous
  Country: US (occurrence: None)
  Receive Date: 20220121
  Receipt Date: 20220121
  Transmission Date: 20220423
  Serious: Yes (Other)
  Sender: FDA-Public Use
  Company Number: None

PATIENT
  Age: 71 Year
  Sex: Male
  Weight: 103 kg

DRUGS (8)
  1. MOLNUPIRAVIR [Suspect]
     Active Substance: MOLNUPIRAVIR
     Indication: COVID-19
     Dosage: FREQUENCY : TWICE A DAY;?
     Route: 048
     Dates: start: 20220120
  2. ATORVASTATIN [Concomitant]
     Active Substance: ATORVASTATIN
  3. APIXABAN [Concomitant]
     Active Substance: APIXABAN
  4. CLOBAZAM [Concomitant]
     Active Substance: CLOBAZAM
  5. LAMOTRIGINE [Concomitant]
     Active Substance: LAMOTRIGINE
  6. LEVETIRACETAM [Concomitant]
     Active Substance: LEVETIRACETAM
  7. NORTRIPTYLINE [Concomitant]
     Active Substance: NORTRIPTYLINE
  8. TAMSULOSIN [Concomitant]
     Active Substance: TAMSULOSIN

REACTIONS (1)
  - Headache [None]

NARRATIVE: CASE EVENT DATE: 20220121
